FAERS Safety Report 13519822 (Version 1)
Quarter: 2017Q2

REPORT INFORMATION
  Report Type: Report from Study
  Country: None (occurrence: NL)
  Receive Date: 20170506
  Receipt Date: 20170506
  Transmission Date: 20170830
  Serious: Yes (Hospitalization)
  Sender: FDA-Public Use
  Company Number: NL-ABBVIE-17K-114-1960730-00

PATIENT
  Sex: Female

DRUGS (1)
  1. DUODOPA [Suspect]
     Active Substance: CARBIDOPA\LEVODOPA
     Indication: PARKINSON^S DISEASE
     Dosage: MD: 4.4, CD:2.4,ED: 3.0, ND: 1.2,ED AT NIGHT: 1.0
     Route: 050
     Dates: start: 20091104

REACTIONS (8)
  - Abdominal pain upper [Not Recovered/Not Resolved]
  - Malaise [Not Recovered/Not Resolved]
  - Device connection issue [Unknown]
  - Device kink [Not Recovered/Not Resolved]
  - Device occlusion [Unknown]
  - Stoma site extravasation [Not Recovered/Not Resolved]
  - Vomiting [Not Recovered/Not Resolved]
  - Device deployment issue [Unknown]
